FAERS Safety Report 9601964 (Version 3)
Quarter: 2014Q1

REPORT INFORMATION
  Report Type: Spontaneous
  Country: DE (occurrence: DE)
  Receive Date: 20131007
  Receipt Date: 20140306
  Transmission Date: 20141002
  Serious: Yes (Hospitalization, Other)
  Sender: FDA-Public Use
  Company Number: PHHY2013DE110152

PATIENT
  Sex: Female

DRUGS (6)
  1. TASIGNA [Suspect]
     Indication: CHRONIC MYELOID LEUKAEMIA
     Dosage: 300 MG, BID
     Route: 048
     Dates: start: 20120820, end: 20130625
  2. SIMVASTATIN [Concomitant]
     Dosage: 1 MG, DAILY
     Dates: start: 20130708
  3. METOHEXAL [Concomitant]
     Dosage: 1 MG, DAILY
     Dates: start: 20130708
  4. RAMIPRIL [Concomitant]
     Dosage: UNK
  5. HYDROCHLOROTHIAZIDE [Concomitant]
     Dosage: 1 MG, DAILY
     Dates: start: 20130708
  6. BRILIQUE [Concomitant]
     Dosage: 2 MG, UNK
     Dates: start: 20130708

REACTIONS (8)
  - Angina pectoris [Recovering/Resolving]
  - Acute myocardial infarction [Recovering/Resolving]
  - Coronary artery disease [Recovering/Resolving]
  - Arthralgia [Unknown]
  - Dizziness [Unknown]
  - Nausea [Unknown]
  - Eczema [Unknown]
  - Weight decreased [Unknown]
